FAERS Safety Report 5388088-5 (Version None)
Quarter: 2007Q3

REPORT INFORMATION
  Report Type: 
  Country: None (occurrence: None)
  Receive Date: 20070716
  Receipt Date: 20061108
  Transmission Date: 20080115
  Serious: No
  Sender: FDA-Public Use
  Company Number: A0626530A

PATIENT
  Age: 64 Year
  Sex: Male

DRUGS (2)
  1. NICORETTE [Suspect]
  2. COMMIT [Suspect]
     Route: 002
     Dates: start: 20030101

REACTIONS (2)
  - INTENTIONAL DRUG MISUSE [None]
  - PHARMACEUTICAL PRODUCT COMPLAINT [None]
